FAERS Safety Report 12960352 (Version 1)
Quarter: 2016Q4

REPORT INFORMATION
  Report Type: Spontaneous
  Country: GB (occurrence: GB)
  Receive Date: 20161121
  Receipt Date: 20161121
  Transmission Date: 20170207
  Serious: Yes (Other)
  Sender: FDA-Public Use
  Company Number: GB-BAYER-2016-220514

PATIENT
  Age: 50 Year
  Sex: Female

DRUGS (3)
  1. MIRENA [Suspect]
     Active Substance: LEVONORGESTREL
     Indication: MENOPAUSE
     Dosage: UNK
     Dates: start: 201607, end: 20161114
  2. MIRENA [Suspect]
     Active Substance: LEVONORGESTREL
     Indication: MENORRHAGIA
  3. MIRENA [Suspect]
     Active Substance: LEVONORGESTREL
     Indication: UTERINE LEIOMYOMA

REACTIONS (10)
  - Anaemia [None]
  - Vulvovaginal candidiasis [None]
  - Skin disorder [None]
  - Breast malformation [None]
  - Dysmenorrhoea [None]
  - Weight increased [None]
  - Uterine haemorrhage [None]
  - Seborrhoea [None]
  - Nervousness [None]
  - Disturbance in attention [None]
